FAERS Safety Report 17943619 (Version 4)
Quarter: 2020Q3

REPORT INFORMATION
  Report Type: Spontaneous
  Country: GB (occurrence: GB)
  Receive Date: 20200625
  Receipt Date: 20200723
  Transmission Date: 20201103
  Serious: Yes (Other)
  Sender: FDA-Public Use
  Company Number: GB-PFIZER INC-2020239204

PATIENT
  Age: 55 Year
  Sex: Male

DRUGS (1)
  1. VIAGRA CONNECT [Suspect]
     Active Substance: SILDENAFIL CITRATE
     Dosage: 50 MG

REACTIONS (2)
  - Visual acuity reduced [Unknown]
  - Drug ineffective [Unknown]
